FAERS Safety Report 9075739 (Version 1)
Quarter: 2013Q1

REPORT INFORMATION
  Report Type: Report from Study
  Country: US (occurrence: US)
  Receive Date: 20130129
  Receipt Date: 20130129
  Transmission Date: 20140127
  Serious: No
  Sender: FDA-Public Use
  Company Number: US-ABBOTT-12P-163-0944065-00

PATIENT
  Sex: Female

DRUGS (1)
  1. HUMIRA 40 MG/0.8 ML PEN [Suspect]
     Indication: PSORIASIS
     Dates: start: 201103

REACTIONS (6)
  - Burning mouth syndrome [Recovering/Resolving]
  - Glossodynia [Recovering/Resolving]
  - Impaired healing [Recovering/Resolving]
  - Drug dose omission [Recovering/Resolving]
  - Psoriasis [Recovering/Resolving]
  - Medical device complication [Recovering/Resolving]
